FAERS Safety Report 9290006 (Version 3)
Quarter: 2013Q3

REPORT INFORMATION
  Report Type: Spontaneous
  Country: PT (occurrence: PT)
  Receive Date: 20130515
  Receipt Date: 20130701
  Transmission Date: 20140515
  Serious: Yes (Other)
  Sender: FDA-Public Use
  Company Number: PT-JNJFOC-20130504000

PATIENT
  Age: 4 Decade
  Sex: Male

DRUGS (4)
  1. REMICADE [Suspect]
     Indication: ANKYLOSING SPONDYLITIS
     Route: 042
  2. REMICADE [Suspect]
     Indication: ANKYLOSING SPONDYLITIS
     Dosage: RECEIVED FROM THE AGE 35 TO 37 YEARS
     Route: 042
  3. REMICADE [Suspect]
     Indication: CROHN^S DISEASE
     Route: 042
  4. REMICADE [Suspect]
     Indication: CROHN^S DISEASE
     Dosage: RECEIVED FROM THE AGE 35 TO 37 YEARS
     Route: 042

REACTIONS (3)
  - Appendicectomy [Unknown]
  - Ankylosing spondylitis [Unknown]
  - Drug ineffective [Unknown]
